FAERS Safety Report 11012976 (Version 2)
Quarter: 2015Q2

REPORT INFORMATION
  Report Type: Spontaneous
  Country: US (occurrence: US)
  Receive Date: 20150411
  Receipt Date: 20150525
  Transmission Date: 20150821
  Serious: No
  Sender: FDA-Public Use
  Company Number: US-JNJFOC-20120904781

PATIENT
  Sex: Male
  Weight: 117.94 kg

DRUGS (2)
  1. NSAIDS [Concomitant]
     Active Substance: UNSPECIFIED INGREDIENT
     Indication: ANTIINFLAMMATORY THERAPY
     Route: 048
     Dates: start: 1987
  2. REMICADE [Suspect]
     Active Substance: INFLIXIMAB
     Indication: PSORIATIC ARTHROPATHY
     Route: 042
     Dates: start: 2004, end: 201202

REACTIONS (1)
  - Drug effect decreased [Recovered/Resolved]
